FAERS Safety Report 11285860 (Version 1)
Quarter: 2015Q3

REPORT INFORMATION
  Report Type: Spontaneous
  Country: JP (occurrence: JP)
  Receive Date: 20150721
  Receipt Date: 20150721
  Transmission Date: 20151125
  Serious: Yes (Other)
  Sender: FDA-Public Use
  Company Number: JP-BEH-2015052381

PATIENT
  Age: 75 Year
  Sex: Female
  Weight: 58 kg

DRUGS (6)
  1. AZACTAM [Concomitant]
     Active Substance: AZTREONAM
     Indication: INFECTION
     Route: 042
     Dates: start: 20130530, end: 20130607
  2. ZYVOX [Suspect]
     Active Substance: LINEZOLID
     Indication: PNEUMONIA STAPHYLOCOCCAL
     Route: 041
     Dates: start: 20130601, end: 20130606
  3. FUNGUARD [Concomitant]
     Active Substance: MICAFUNGIN SODIUM
     Route: 042
     Dates: start: 20130601, end: 20130608
  4. NISSEKI POLYGLOBIN N [Concomitant]
     Active Substance: HUMAN IMMUNOGLOBULIN G
     Route: 042
     Dates: start: 20130530, end: 20130601
  5. ALBUMINAR [Suspect]
     Active Substance: ALBUMIN (HUMAN)
     Indication: PRODUCT USED FOR UNKNOWN INDICATION
     Route: 041
     Dates: start: 20130530, end: 20130615
  6. NEUART [Concomitant]
     Indication: INFECTION
     Dosage: DOSE: 1500
     Route: 042
     Dates: start: 20130530, end: 20130602

REACTIONS (2)
  - Cardiac failure congestive [Recovered/Resolved]
  - Respiratory disorder [Recovered/Resolved]

NARRATIVE: CASE EVENT DATE: 20130603
